FAERS Safety Report 23642955 (Version 4)
Quarter: 2024Q3

REPORT INFORMATION
  Report Type: Report from Study
  Country: US (occurrence: US)
  Receive Date: 20240318
  Receipt Date: 20240902
  Transmission Date: 20241017
  Serious: Yes (Hospitalization, Other)
  Sender: ROCHE
  Company Number: US-ROCHE-3525041

PATIENT

DRUGS (1)
  1. XOLAIR [Suspect]
     Active Substance: OMALIZUMAB
     Indication: Product used for unknown indication
     Route: 065

REACTIONS (20)
  - Anaphylactic reaction [Unknown]
  - Skin burning sensation [Unknown]
  - Lung disorder [Unknown]
  - Pharyngeal swelling [Unknown]
  - Cardiac disorder [Unknown]
  - Nervous system disorder [Unknown]
  - Loss of consciousness [Unknown]
  - Migraine [Unknown]
  - Aphasia [Unknown]
  - Gait inability [Unknown]
  - Speech disorder [Unknown]
  - Pulmonary oedema [Unknown]
  - Swollen tongue [Unknown]
  - Asthma [Unknown]
  - Oxygen saturation decreased [Unknown]
  - Seizure [Unknown]
  - Arrhythmia [Unknown]
  - Supraventricular tachycardia [Unknown]
  - Gastrointestinal disorder [Unknown]
  - Histone antibody positive [Unknown]
